FAERS Safety Report 25951655 (Version 2)
Quarter: 2025Q4

REPORT INFORMATION
  Report Type: Spontaneous
  Country: AU (occurrence: AU)
  Receive Date: 20251023
  Receipt Date: 20251211
  Transmission Date: 20260118
  Serious: Yes (Other)
  Sender: NOVARTIS
  Company Number: AU-002147023-NVSC2025AU160077

PATIENT
  Sex: Male

DRUGS (1)
  1. COSENTYX [Suspect]
     Active Substance: SECUKINUMAB
     Indication: Product used for unknown indication
     Dosage: UNK
     Route: 065
     Dates: start: 202408

REACTIONS (5)
  - Alcohol intolerance [Unknown]
  - Swelling face [Unknown]
  - Lip swelling [Unknown]
  - Pruritus [Unknown]
  - Dyspnoea [Unknown]

NARRATIVE: CASE EVENT DATE: 20250101
